FAERS Safety Report 5126854-1 (Version None)
Quarter: 2006Q4

REPORT INFORMATION
  Report Type: 
  Country: None (occurrence: None)
  Receive Date: 20061013
  Receipt Date: 20061003
  Transmission Date: 20070319
  Serious: Yes (Hospitalization)
  Sender: FDA-Public Use
  Company Number: FR-ROCHE-465744

PATIENT
  Age: 22 Year
  Sex: Male
  Weight: 51.7 kg

DRUGS (6)
  1. DACLIZUMAB [Suspect]
     Route: 065
     Dates: start: 20050824, end: 20050824
  2. DACLIZUMAB [Suspect]
     Route: 065
     Dates: start: 20050906, end: 20050906
  3. MYCOPHENOLATE MOFETIL [Suspect]
     Route: 065
     Dates: start: 20050824
  4. SIROLIMUS [Suspect]
     Route: 065
     Dates: start: 20051217
  5. CYCLOSPORINE [Suspect]
     Route: 065
  6. CORTICOSTEROID NOS [Suspect]
     Route: 065
     Dates: start: 20050824

REACTIONS (3)
  - KIDNEY TRANSPLANT REJECTION [None]
  - URINE ANALYSIS ABNORMAL [None]
  - VIRAL INFECTION [None]
